FAERS Safety Report 7898706 (Version 2)
Quarter: 2013Q2

REPORT INFORMATION
  Report Type: Report from Study
  Country: US (occurrence: US)
  Receive Date: 20110414
  Receipt Date: 20130603
  Transmission Date: 20140414
  Serious: Yes (Other)
  Sender: FDA-Public Use
  Company Number: US-ELI_LILLY_AND_COMPANY-US201104001147

PATIENT
  Sex: Male
  Weight: 34.2 kg

DRUGS (4)
  1. SOMATROPIN [Suspect]
     Dosage: 0.9 MG, BID 7 DAYS A WEEK
     Route: 058
  2. ARIMIDEX [Concomitant]
     Indication: BONE DEVELOPMENT ABNORMAL
     Dosage: UNK
     Dates: start: 20100419
  3. CALCIUM + VITAMIN D [Concomitant]
     Indication: SUPPLEMENTATION THERAPY
     Dosage: UNK
     Dates: start: 20100414
  4. DETROL LA [Concomitant]
     Indication: HYPERTONIC BLADDER
     Dosage: UNK

REACTIONS (1)
  - Tongue neoplasm malignant stage unspecified [Unknown]
